FAERS Safety Report 25816888 (Version 1)
Quarter: 2025Q3

REPORT INFORMATION
  Report Type: Spontaneous
  Country: US (occurrence: US)
  Receive Date: 20250918
  Receipt Date: 20250918
  Transmission Date: 20251020
  Serious: Yes (Death, Other)
  Sender: BAYER HEALTHCARE LLC
  Company Number: US-BAYER-2025A122541

PATIENT
  Sex: Male

DRUGS (1)
  1. ASPIRIN [Suspect]
     Active Substance: ASPIRIN
     Indication: Thrombosis prophylaxis

REACTIONS (2)
  - Subarachnoid haemorrhage [Fatal]
  - Intraventricular haemorrhage [Fatal]
